FAERS Safety Report 14554327 (Version 1)
Quarter: 2018Q1

REPORT INFORMATION
  Report Type: Spontaneous
  Country: US (occurrence: US)
  Receive Date: 20180217
  Receipt Date: 20180217
  Transmission Date: 20180509
  Serious: Yes (Life-Threatening)
  Sender: FDA-Public Use
  Company Number: None

PATIENT
  Age: 59 Year
  Sex: Male
  Weight: 84.6 kg

DRUGS (11)
  1. PLAVIX [Concomitant]
     Active Substance: CLOPIDOGREL BISULFATE
  2. IMDUR [Concomitant]
     Active Substance: ISOSORBIDE MONONITRATE
  3. ASPIRIN. [Concomitant]
     Active Substance: ASPIRIN
  4. TAMSILOSIN [Concomitant]
  5. AZILECT [Concomitant]
     Active Substance: RASAGILINE MESYLATE
  6. INFED [Suspect]
     Active Substance: IRON DEXTRAN
     Indication: IRON DEFICIENCY ANAEMIA
     Dosage: ?          OTHER FREQUENCY:TEST DOSE ONLY;?
     Route: 042
     Dates: start: 20180124
  7. VITAMIN D3 [Suspect]
     Active Substance: CHOLECALCIFEROL
  8. RYTARY [Concomitant]
     Active Substance: CARBIDOPA\LEVODOPA
  9. METOPROLOL ER [Concomitant]
     Active Substance: METOPROLOL SUCCINATE
  10. ROPINEROL [Concomitant]
  11. MELATONIN [Concomitant]
     Active Substance: MELATONIN

REACTIONS (10)
  - Pruritus [None]
  - Flushing [None]
  - Suffocation feeling [None]
  - Chest discomfort [None]
  - Eructation [None]
  - Oxygen saturation decreased [None]
  - Blood pressure decreased [None]
  - Vomiting [None]
  - Dyspnoea [None]
  - Nausea [None]

NARRATIVE: CASE EVENT DATE: 20180124
